FAERS Safety Report 15044566 (Version 1)
Quarter: 2018Q2

REPORT INFORMATION
  Report Type: Spontaneous
  Country: US (occurrence: US)
  Receive Date: 20180621
  Receipt Date: 20180621
  Transmission Date: 20180711
  Serious: Yes (Other)
  Sender: FDA-Public Use
  Company Number: US-TEVA-2018-US-909739

PATIENT
  Age: 19 Year
  Sex: Male

DRUGS (3)
  1. AMPHETAMINE ER [Suspect]
     Active Substance: AMPHETAMINE
     Dosage: TEVA TABLET AT 5 PM
     Dates: start: 20180610
  2. AMPHETAMINE ER [Suspect]
     Active Substance: AMPHETAMINE
     Indication: ATTENTION DEFICIT/HYPERACTIVITY DISORDER
     Dosage: ACTAVIS BRAND XR, IN THE MORNING
     Dates: start: 20180610
  3. AMPHETAMINE ER [Suspect]
     Active Substance: AMPHETAMINE
     Dosage: ON THE MORNING

REACTIONS (1)
  - Seizure [Unknown]

NARRATIVE: CASE EVENT DATE: 20180611
